FAERS Safety Report 8168797-5 (Version None)
Quarter: 2012Q1

REPORT INFORMATION
  Report Type: 
  Country: None (occurrence: None)
  Receive Date: 20120227
  Receipt Date: 20120221
  Transmission Date: 20120608
  Serious: Yes (Other)
  Sender: FDA-Public Use
  Company Number: FI-PFIZER INC-2012029808

PATIENT
  Age: 45 Year
  Sex: Female

DRUGS (4)
  1. KALCIPOS-D [Concomitant]
     Dosage: ONE  TABLET (500MG/400IU) TWICE DAILY
  2. DISPERIN [Concomitant]
     Dosage: 100 MG, 1X/DAY
  3. NEURONTIN [Suspect]
     Indication: NEURALGIA
     Dosage: 300 MG, UNK
     Route: 048
     Dates: start: 20111220, end: 20111226
  4. SOTALOL HYDROCHLORIDE [Concomitant]
     Dosage: 120 MG, 2X/DAY

REACTIONS (7)
  - MIGRAINE WITH AURA [None]
  - NAUSEA [None]
  - RESPIRATORY DISORDER [None]
  - DYSPNOEA [None]
  - VISUAL IMPAIRMENT [None]
  - CHEST PAIN [None]
  - FATIGUE [None]
